FAERS Safety Report 8942824 (Version 1)
Quarter: 2012Q4

REPORT INFORMATION
  Report Type: Spontaneous
  Country: CN (occurrence: None)
  Receive Date: 20121123
  Receipt Date: 20121123
  Transmission Date: 20130627
  Serious: Yes (Hospitalization, Other)
  Sender: FDA-Public Use
  Company Number: 2012P1065078

PATIENT
  Age: 27 Month
  Sex: Female

DRUGS (4)
  1. LEVETIRACETAM [Suspect]
     Indication: SEIZURES
  2. LEVETIRACETAM [Suspect]
     Indication: SEIZURES
  3. OXCARBAZEPINE [Suspect]
     Indication: SEIZURES
  4. PHENOBARBITAL [Concomitant]

REACTIONS (1)
  - Stevens-Johnson syndrome [None]
